FAERS Safety Report 4666629-0 (Version None)
Quarter: 2005Q2

REPORT INFORMATION
  Report Type: 
  Country: None (occurrence: None)
  Receive Date: 20050519
  Receipt Date: 20050419
  Transmission Date: 20051028
  Serious: Yes (Life-Threatening, Hospitalization, Other)
  Sender: FDA-Public Use
  Company Number: US-AMGEN-US127572

PATIENT
  Sex: Male

DRUGS (8)
  1. ENBREL [Suspect]
     Indication: PSORIATIC ARTHROPATHY
     Route: 042
     Dates: start: 20050401, end: 20050401
  2. ACETYLCYSTEINE [Concomitant]
     Dates: start: 20050418
  3. ESOMEPRAZOLE [Concomitant]
  4. FLUOCINOLONE ACETONIDE [Concomitant]
     Dates: start: 20050418
  5. LACTOBACILLUS ACIDOPHILUS [Concomitant]
     Dates: start: 20050418
  6. NYSTATIN [Concomitant]
     Route: 048
     Dates: start: 20050418
  7. PROPRANOLOL [Concomitant]
  8. MULTI-VITAMINS [Concomitant]

REACTIONS (3)
  - GUILLAIN-BARRE SYNDROME [None]
  - PARALYSIS [None]
  - RESPIRATORY FAILURE [None]
